FAERS Safety Report 19484717 (Version 3)
Quarter: 2021Q4

REPORT INFORMATION
  Report Type: Spontaneous
  Country: IT (occurrence: IT)
  Receive Date: 20210702
  Receipt Date: 20211119
  Transmission Date: 20220303
  Serious: Yes (Hospitalization)
  Sender: FDA-Public Use
  Company Number: IT-GLAXOSMITHKLINE-IT2021EME105498

PATIENT
  Age: 63 Year
  Sex: Female

DRUGS (10)
  1. LANSOPRAZOLE [Suspect]
     Active Substance: LANSOPRAZOLE
     Indication: Product used for unknown indication
     Dosage: UNK
     Route: 065
  2. NIRAPARIB [Suspect]
     Active Substance: NIRAPARIB
     Indication: Ovarian cancer
     Dosage: 200 MILLIGRAM, 200 MG
     Route: 048
     Dates: start: 20210414, end: 20210514
  3. PREDNISONE [Suspect]
     Active Substance: PREDNISONE
     Indication: Product used for unknown indication
     Dosage: 5 MILLIGRAM, 5 MG DIE
     Route: 065
  4. PREDNISONE [Suspect]
     Active Substance: PREDNISONE
     Dosage: 5 MILLIGRAM
     Route: 065
  5. PFIZER-BIONTECH COVID-19 VACCINE [Suspect]
     Active Substance: TOZINAMERAN
     Indication: Prophylaxis
     Dosage: UNK
     Route: 065
     Dates: start: 20210427, end: 20210427
  6. PFIZER-BIONTECH COVID-19 VACCINE [Suspect]
     Active Substance: TOZINAMERAN
     Dosage: UNK
     Route: 065
     Dates: start: 20210406, end: 20210406
  7. TAXOL [Concomitant]
     Active Substance: PACLITAXEL
     Indication: Product used for unknown indication
     Dosage: UNK
     Route: 065
     Dates: start: 20210215, end: 20210215
  8. TAXOL [Concomitant]
     Active Substance: PACLITAXEL
     Dosage: UNK
     Route: 065
     Dates: start: 20201102, end: 20201102
  9. CARBOPLATIN [Concomitant]
     Active Substance: CARBOPLATIN
     Indication: Product used for unknown indication
     Dosage: UNK
     Route: 065
     Dates: start: 20201102, end: 20201102
  10. CARBOPLATIN [Concomitant]
     Active Substance: CARBOPLATIN
     Dosage: UNK
     Route: 065
     Dates: start: 20210215, end: 20210215

REACTIONS (5)
  - White blood cell count decreased [Recovered/Resolved]
  - Platelet count abnormal [Unknown]
  - Red blood cell abnormality [Recovered/Resolved]
  - Haemoglobin abnormal [Recovered/Resolved]
  - Neutrophil count abnormal [Recovered/Resolved]

NARRATIVE: CASE EVENT DATE: 20210510
